FAERS Safety Report 17485018 (Version 2)
Quarter: 2020Q1

REPORT INFORMATION
  Report Type: Report from Study
  Country: SE (occurrence: SE)
  Receive Date: 20200302
  Receipt Date: 20200306
  Transmission Date: 20200409
  Serious: Yes (Hospitalization, Other)
  Sender: FDA-Public Use
  Company Number: NVSC2020SE056543

PATIENT
  Age: 10 Year
  Sex: Male

DRUGS (1)
  1. TRAMETINIB [Suspect]
     Active Substance: TRAMETINIB
     Indication: ASTROCYTOMA
     Route: 048

REACTIONS (5)
  - Osteomyelitis bacterial [Unknown]
  - Skin ulcer [Recovered/Resolved]
  - Pyrexia [Unknown]
  - Dry skin [Recovered/Resolved]
  - Staphylococcus test positive [Unknown]
